FAERS Safety Report 4732301-1 (Version None)
Quarter: 2005Q3

REPORT INFORMATION
  Report Type: 
  Country: None (occurrence: None)
  Receive Date: 20050726
  Receipt Date: 20050202
  Transmission Date: 20060218
  Serious: Yes (Life-Threatening)
  Sender: FDA-Public Use
  Company Number: 05GER0054

PATIENT
  Age: 69 Year
  Sex: Female

DRUGS (8)
  1. AGGRASTAT [Suspect]
     Indication: ACUTE CORONARY SYNDROME
     Dates: start: 20040912, end: 20040914
  2. ASPIRIN [Concomitant]
  3. CLOPIDOGREL BISULFATE [Concomitant]
  4. ENALAPRIL MALEATE [Concomitant]
  5. ENOXAPARIN SODIUM [Concomitant]
  6. FLUVASTATIN SODIUM (FLUVASTATIN SODIUM) [Concomitant]
  7. METOPROLOL SUCCINATE [Concomitant]
  8. RANITIDINE [Concomitant]

REACTIONS (1)
  - THROMBOCYTOPENIA [None]
